FAERS Safety Report 14661725 (Version 1)
Quarter: 2018Q1

REPORT INFORMATION
  Report Type: Spontaneous
  Country: IT (occurrence: IT)
  Receive Date: 20180320
  Receipt Date: 20180320
  Transmission Date: 20180509
  Serious: Yes (Hospitalization)
  Sender: FDA-Public Use
  Company Number: IT-TEVA-2018-IT-868931

PATIENT
  Age: 85 Year
  Sex: Female

DRUGS (11)
  1. RAMIPRIL. [Concomitant]
     Active Substance: RAMIPRIL
  2. EUTIROX TABLET [Concomitant]
  3. LUVION [Concomitant]
     Route: 048
  4. HUMALOG [Concomitant]
     Active Substance: INSULIN LISPRO
  5. NORVASC [Suspect]
     Active Substance: AMLODIPINE BESYLATE
     Indication: HYPERTENSION
     Route: 048
     Dates: start: 20170101, end: 20170907
  6. LANSOX [Concomitant]
     Active Substance: LANSOPRAZOLE
  7. DELTACORTENE [Concomitant]
     Active Substance: PREDNISONE
  8. LANTUS [Concomitant]
     Active Substance: INSULIN GLARGINE
  9. BISOPROLOL FUMARATE. [Suspect]
     Active Substance: BISOPROLOL FUMARATE
     Indication: HYPERTENSION
     Route: 048
     Dates: start: 20170101, end: 20170907
  10. LASIX [Suspect]
     Active Substance: FUROSEMIDE
     Indication: HYPERTENSION
     Route: 048
     Dates: start: 20170101, end: 20170907
  11. LIXIANA [Concomitant]
     Active Substance: EDOXABAN TOSYLATE

REACTIONS (1)
  - Presyncope [Unknown]

NARRATIVE: CASE EVENT DATE: 20170907
